FAERS Safety Report 7273182-4 (Version None)
Quarter: 2011Q1

REPORT INFORMATION
  Report Type: 
  Country: None (occurrence: None)
  Receive Date: 20110203
  Receipt Date: 20110125
  Transmission Date: 20110831
  Serious: Yes (Death)
  Sender: FDA-Public Use
  Company Number: US-CELGENEUS-163-21880-11011298

PATIENT
  Sex: Female

DRUGS (7)
  1. HYDROCHLOROTHIAZIDE [Concomitant]
     Route: 065
  2. AMBIEN [Concomitant]
     Route: 065
  3. REVLIMID [Suspect]
     Indication: MULTIPLE MYELOMA
     Route: 048
     Dates: start: 20090701, end: 20090101
  4. REVLIMID [Suspect]
     Dosage: 15MG-10MG
     Route: 048
     Dates: start: 20091001, end: 20100101
  5. TRAMADOL HCL [Concomitant]
     Route: 065
  6. REVLIMID [Suspect]
     Route: 048
     Dates: start: 20100901
  7. DEXAMETHASONE [Concomitant]
     Route: 065

REACTIONS (2)
  - MULTI-ORGAN FAILURE [None]
  - MULTIPLE MYELOMA [None]
